FAERS Safety Report 14490591 (Version 1)
Quarter: 2018Q1

REPORT INFORMATION
  Report Type: Report from Study
  Country: GB (occurrence: GB)
  Receive Date: 20180206
  Receipt Date: 20180206
  Transmission Date: 20180509
  Serious: Yes (Hospitalization)
  Sender: FDA-Public Use
  Company Number: GB-ROCHE-1884056

PATIENT
  Age: 70 Year
  Sex: Female
  Weight: 89.2 kg

DRUGS (11)
  1. CLARITHROMYCIN. [Concomitant]
     Active Substance: CLARITHROMYCIN
     Indication: PRODUCTIVE COUGH
     Route: 065
     Dates: start: 20161221, end: 20161227
  2. PIRITON [Concomitant]
     Active Substance: CHLORPHENIRAMINE MALEATE
     Indication: RASH
     Route: 065
     Dates: start: 20160331
  3. ALLOPURINOL. [Concomitant]
     Active Substance: ALLOPURINOL
     Route: 065
     Dates: start: 20161221
  4. GAMMAPLEX [Concomitant]
     Active Substance: HUMAN IMMUNOGLOBULIN G
     Indication: HYPOGAMMAGLOBULINAEMIA
     Dosage: 35G/IV/MONTHLY
     Route: 042
     Dates: start: 20160221
  5. ATEZOLIZUMAB. [Suspect]
     Active Substance: ATEZOLIZUMAB
     Indication: DIFFUSE LARGE B-CELL LYMPHOMA REFRACTORY
     Dosage: ON DAY 1 OF CYCLES 2-8 (AS PER PROTOCOL).?MOST RECENT DOSE OF ATEZOLIZUMAB 1200 MG PRIOR TO THE EVEN
     Route: 042
     Dates: start: 20160317
  6. ASPIRIN. [Concomitant]
     Active Substance: ASPIRIN
     Indication: ANGIOPLASTY
     Route: 065
     Dates: start: 20150622
  7. RAMIPRIL. [Concomitant]
     Active Substance: RAMIPRIL
     Indication: ANGIOPLASTY
     Route: 065
     Dates: start: 20150623
  8. BISOPROLOL [Concomitant]
     Active Substance: BISOPROLOL
     Indication: ANGIOPLASTY
     Route: 065
     Dates: start: 20150623
  9. ATORVASTATIN [Concomitant]
     Active Substance: ATORVASTATIN
     Indication: ANGIOPLASTY
     Route: 065
     Dates: start: 20150622
  10. CLARITHROMYCIN. [Concomitant]
     Active Substance: CLARITHROMYCIN
     Indication: COUGH
  11. OBINUTUZUMAB. [Suspect]
     Active Substance: OBINUTUZUMAB
     Indication: DIFFUSE LARGE B-CELL LYMPHOMA REFRACTORY
     Dosage: ON DAYS 1, 8, AND 15 OF CYCLE 1 (AS PER PROTOCOL)?MOST RECENT DOSE OF OBINUTUZUMAB 1000 MG PRIOR TO
     Route: 042
     Dates: start: 20160224, end: 20160728

REACTIONS (2)
  - Syncope [Recovered/Resolved]
  - Abdominal pain [Recovered/Resolved]

NARRATIVE: CASE EVENT DATE: 20170104
